FAERS Safety Report 9468832 (Version 1)
Quarter: 2013Q3

REPORT INFORMATION
  Report Type: Spontaneous
  Country: US (occurrence: US)
  Receive Date: 20130821
  Receipt Date: 20130821
  Transmission Date: 20140515
  Serious: No
  Sender: FDA-Public Use
  Company Number: US-009507513-1308USA006135

PATIENT
  Sex: 0

DRUGS (1)
  1. PROVENTIL [Suspect]
     Dosage: INHALE 2 PUFFS EVERY 4 TO 6 HOURS AS NEEDED
     Route: 048

REACTIONS (3)
  - Drug dose omission [Unknown]
  - Product quality issue [Unknown]
  - No adverse event [Unknown]
